FAERS Safety Report 9133801 (Version 1)
Quarter: 2013Q1

REPORT INFORMATION
  Report Type: Spontaneous
  Country: US (occurrence: US)
  Receive Date: 20130303
  Receipt Date: 20130303
  Transmission Date: 20140127
  Serious: No
  Sender: FDA-Public Use
  Company Number: US-ENDO PHARMACEUTICALS INC.-VANT20110005

PATIENT
  Sex: Male

DRUGS (1)
  1. VANTAS [Suspect]
     Indication: PRODUCT USED FOR UNKNOWN INDICATION
     Route: 058
     Dates: start: 201010, end: 201101

REACTIONS (2)
  - Dermatitis [Unknown]
  - Rash [Unknown]
